FAERS Safety Report 4290368-1 (Version None)
Quarter: 2004Q1

REPORT INFORMATION
  Report Type: 
  Country: None (occurrence: None)
  Receive Date: 20040210
  Receipt Date: 20040202
  Transmission Date: 20041129
  Serious: Yes (Hospitalization)
  Sender: FDA-Public Use
  Company Number: PHNU2004DE00767

PATIENT
  Age: 64 Year
  Sex: Male
  Weight: 87 kg

DRUGS (5)
  1. DIOVAN [Suspect]
     Indication: HYPERTENSION
     Dosage: 160 MG, QD
     Route: 048
     Dates: start: 20031013, end: 20031206
  2. ESIDRIX [Suspect]
     Indication: HYPERTENSION
     Dosage: 25 MG, QD
     Route: 048
     Dates: start: 20031013, end: 20031110
  3. ESIDRIX [Suspect]
     Dosage: 12.5 MG, QD
     Route: 048
     Dates: start: 20031110, end: 20031206
  4. APONAL [Concomitant]
     Dosage: 5-10 MG/D
     Route: 048
     Dates: start: 20010101
  5. ALLOPURINOL [Concomitant]
     Dosage: 1 DF, QD
     Route: 048
     Dates: start: 20031016

REACTIONS (6)
  - ELECTROLYTE DEPLETION [None]
  - FEELING HOT [None]
  - GASTROENTERITIS [None]
  - GASTROINTESTINAL INFECTION [None]
  - HYPERHIDROSIS [None]
  - SYNCOPE [None]
